FAERS Safety Report 9208023 (Version 1)
Quarter: 2013Q2

REPORT INFORMATION
  Report Type: Spontaneous
  Country: CA (occurrence: CA)
  Receive Date: 20130403
  Receipt Date: 20130403
  Transmission Date: 20140414
  Serious: Yes (Other)
  Sender: FDA-Public Use
  Company Number: CHPA2013CA005329

PATIENT
  Age: 49 Year
  Sex: Male

DRUGS (6)
  1. BUCKLEY^S MIXTURE [Suspect]
     Indication: BRONCHITIS
     Dosage: 6 TSP, UNK
     Route: 048
  2. BUCKLEY^S MIXTURE [Suspect]
     Indication: ASTHMA
     Dosage: UNK, UNK
     Route: 048
  3. BUCKLEY^S DM [Suspect]
     Indication: BRONCHITIS
     Dosage: 6 TSP, UNK
     Route: 048
  4. BUCKLEY^S DM [Suspect]
     Indication: ASTHMA
     Dosage: UNK, UNK
     Route: 048
  5. BUCKLEY^S MUCOUS + PHLEGM [Suspect]
     Indication: BRONCHITIS
     Dosage: 6 TSP, UNK
     Route: 048
     Dates: end: 201303
  6. BUCKLEY^S MUCOUS + PHLEGM [Suspect]
     Indication: ASTHMA
     Dosage: UNK, UNK
     Route: 048
     Dates: end: 201303

REACTIONS (6)
  - Asthma [Unknown]
  - Bronchitis [Unknown]
  - Hyperhidrosis [Recovered/Resolved]
  - Off label use [Unknown]
  - Wrong technique in drug usage process [Unknown]
  - Incorrect dose administered [Unknown]
